FAERS Safety Report 9663311 (Version 3)
Quarter: 2014Q1

REPORT INFORMATION
  Report Type: Spontaneous
  Country: JP (occurrence: JP)
  Receive Date: 20131101
  Receipt Date: 20140306
  Transmission Date: 20141002
  Serious: Yes (Life-Threatening)
  Sender: FDA-Public Use
  Company Number: JP-AMGEN-JPNSP2013077030

PATIENT
  Age: 77 Year
  Sex: Male
  Weight: 48 kg

DRUGS (19)
  1. RANMARK [Suspect]
     Indication: METASTASES TO BONE
     Dosage: 120 MG, UNK
     Route: 058
     Dates: start: 20131007, end: 20131007
  2. TRAMAL [Concomitant]
     Indication: METASTASES TO BONE
     Dosage: 50 MG, Q6H
     Route: 048
     Dates: start: 20131004, end: 20131007
  3. CALCIUM LACTATE [Concomitant]
     Indication: PROPHYLAXIS
     Dosage: 1 G, TID
     Route: 048
     Dates: start: 20131007
  4. ALFACALCIDOL [Concomitant]
     Indication: PROPHYLAXIS
     Route: 048
     Dates: start: 20131007
  5. BROTIZOLAM [Concomitant]
     Indication: INSOMNIA
     Route: 048
  6. PRORENAL [Concomitant]
     Indication: LUMBAR SPINAL STENOSIS
     Dosage: 5 MUG, TID
     Route: 048
     Dates: start: 20130513
  7. METHYCOBAL [Concomitant]
     Indication: LUMBAR SPINAL STENOSIS
     Route: 048
     Dates: start: 20130513
  8. LYRICA [Concomitant]
     Indication: LUMBAR SPINAL STENOSIS
     Route: 048
     Dates: start: 20130701
  9. OXYCONTIN [Concomitant]
     Indication: METASTASES TO BONE
     Dosage: 5 MG, BID
     Route: 048
     Dates: start: 20131007
  10. OXYCONTIN [Concomitant]
     Route: 048
     Dates: start: 20131007
  11. NOVAMIN                            /00013301/ [Concomitant]
     Indication: PROPHYLAXIS OF NAUSEA AND VOMITING
     Dosage: 5 MG, TID
     Route: 048
     Dates: start: 20131007
  12. PANPYOTIN [Concomitant]
     Indication: CONSTIPATION PROPHYLAXIS
     Dosage: UNK UNK, TID
     Route: 048
     Dates: start: 20131007
  13. PANPYOTIN [Concomitant]
     Dosage: SINGLE DOSE: 10
     Route: 048
     Dates: start: 20131007
  14. MAGNESIUM OXIDE [Concomitant]
     Indication: CONSTIPATION PROPHYLAXIS
     Route: 048
     Dates: start: 20131007
  15. OXINORM                            /00045603/ [Concomitant]
     Indication: METASTASES TO BONE
     Dosage: FREQUENCY: UNDEFINED
     Route: 048
     Dates: start: 20131007
  16. FLOMOX                             /01418603/ [Concomitant]
     Dosage: UNKNOWN
     Route: 065
  17. BIOFERMIN                          /07958301/ [Concomitant]
     Dosage: UNKNOWN
     Route: 065
  18. PONTAL [Concomitant]
     Dosage: UNKNOWN
     Route: 065
  19. LOXONIN [Concomitant]
     Indication: LUMBAR SPINAL STENOSIS
     Route: 062
     Dates: start: 20130701

REACTIONS (4)
  - Renal failure acute [Recovered/Resolved]
  - Hyperkalaemia [Unknown]
  - Hypoxia [Not Recovered/Not Resolved]
  - Hypocalcaemia [Not Recovered/Not Resolved]
